FAERS Safety Report 5814596-6 (Version None)
Quarter: 2008Q3

REPORT INFORMATION
  Report Type: 
  Country: None (occurrence: None)
  Receive Date: 20080718
  Receipt Date: 20071113
  Transmission Date: 20090109
  Serious: No
  Sender: FDA-Public Use
  Company Number: US-KINGPHARMUSA00001-K200701467

PATIENT

DRUGS (11)
  1. LEVOXYL [Suspect]
     Dosage: 88 MCG, QD
     Route: 048
     Dates: start: 19980101
  2. ACCOLATE [Concomitant]
  3. NEXIUM [Concomitant]
  4. HYDROXYZINE [Concomitant]
  5. HYDROCHLOROTHIAZIDE [Concomitant]
  6. PROVENTIL                          /00139501/ [Concomitant]
  7. ASMANEX TWISTHALER [Concomitant]
  8. INTAL [Concomitant]
  9. VERAPAMIL [Concomitant]
  10. ZYRTEC [Concomitant]
  11. NEBULIZER (UNSPECIFIED) [Concomitant]

REACTIONS (4)
  - BRONCHITIS [None]
  - PHARYNGITIS STREPTOCOCCAL [None]
  - PNEUMONIA [None]
  - WEIGHT DECREASED [None]
